FAERS Safety Report 14336523 (Version 4)
Quarter: 2018Q4

REPORT INFORMATION
  Report Type: Spontaneous
  Country: IT (occurrence: IT)
  Receive Date: 20171229
  Receipt Date: 20181031
  Transmission Date: 20190204
  Serious: Yes (Hospitalization, Other)
  Sender: FDA-Public Use
  Company Number: IT-AUROBINDO-AUR-APL-2017-48074

PATIENT
  Age: 45 Year
  Sex: Male

DRUGS (24)
  1. DAKLINZA [Suspect]
     Active Substance: DACLATASVIR
     Dosage: 60 MG, UNK
     Route: 065
  2. GAVISCON ADVANCE                   /01340901/ [Concomitant]
     Indication: DYSPEPSIA
     Dosage: ()
     Route: 048
     Dates: start: 20120221, end: 20150408
  3. LAMIVUDINE. [Suspect]
     Active Substance: LAMIVUDINE
     Indication: HIV INFECTION
     Dosage: ()
     Route: 065
  4. DAKLINZA [Suspect]
     Active Substance: DACLATASVIR
     Indication: HEPATITIS C
     Dosage: 30 MG BLISTER PACK (PVC/PCTFE/AL)-28 TABLETS
     Route: 048
     Dates: start: 20150603, end: 20150722
  5. REYATAZ [Suspect]
     Active Substance: ATAZANAVIR SULFATE
     Indication: ACQUIRED IMMUNODEFICIENCY SYNDROME
     Dosage: 300 MILLIGRAM, ONCE A DAY, 300 MG BOTTLE (HIGH DENSITY POLYETHYLENE) 30 CAPSULES
     Route: 048
     Dates: start: 20091007, end: 20150722
  6. SOVALDI [Suspect]
     Active Substance: SOFOSBUVIR
     Dosage: 400 MG BOTTLE (HDPE)- 28 TABLETS
     Route: 048
     Dates: start: 20150603, end: 20151111
  7. PERIDON                            /00498201/ [Concomitant]
     Active Substance: DOMPERIDONE
     Indication: NAUSEA
     Dosage: UNK
     Route: 048
     Dates: start: 20110706, end: 20150408
  8. LAEVOLAC EPS [Concomitant]
     Indication: PRODUCT USED FOR UNKNOWN INDICATION
     Dosage: ()
     Route: 051
  9. DIBASE [Concomitant]
     Active Substance: CHOLECALCIFEROL
     Indication: PRODUCT USED FOR UNKNOWN INDICATION
     Dosage: UNK GTT, UNK
     Route: 048
     Dates: start: 20120522
  10. LAMIVUDINE. [Concomitant]
     Active Substance: LAMIVUDINE
     Indication: PRODUCT USED FOR UNKNOWN INDICATION
     Dosage: ()
     Route: 065
  11. COPEGUS [Suspect]
     Active Substance: RIBAVIRIN
     Dosage: 600 MG, QD
     Route: 065
  12. TRUVADA [Concomitant]
     Active Substance: EMTRICITABINE\TENOFOVIR DISOPROXIL FUMARATE
     Indication: HIV INFECTION
     Dosage: UNK
     Route: 048
     Dates: start: 20091007, end: 20120621
  13. REYATAZ [Suspect]
     Active Substance: ATAZANAVIR SULFATE
     Indication: HIV INFECTION
  14. SOVALDI [Suspect]
     Active Substance: SOFOSBUVIR
     Indication: HEPATITIS C
     Dosage: 60 MILLIGRAM
     Route: 065
  15. TALOFEN [Concomitant]
     Active Substance: PROMAZINE HYDROCHLORIDE
     Indication: PRODUCT USED FOR UNKNOWN INDICATION
     Dosage: 20 GTT, 4 GM/100 MLM -30ML BOTTLE SOLUTIONS
     Route: 048
     Dates: start: 20130513
  16. DOMPERIDONE                        /00498202/ [Concomitant]
     Active Substance: DOMPERIDONE MALEATE
     Indication: PRODUCT USED FOR UNKNOWN INDICATION
     Dosage: 20 GTT, UNK
     Route: 048
  17. DAKLINZA [Suspect]
     Active Substance: DACLATASVIR
     Dosage: 60 MG, UNK
     Route: 065
     Dates: start: 20150722
  18. NORVIR [Suspect]
     Active Substance: RITONAVIR
     Indication: HIV INFECTION
     Dosage: 100 MILLIGRAM, ONCE A DAY, 100 MG BOTTLE (HDPE)-30 TABLETS
     Route: 048
     Dates: start: 20091007, end: 20150722
  19. METHADONE [Concomitant]
     Active Substance: METHADONE HYDROCHLORIDE
     Indication: DRUG DEPENDENCE
     Dosage: ()
     Route: 048
     Dates: start: 20090803
  20. NEORECORMON [Concomitant]
     Active Substance: ERYTHROPOIETIN
     Indication: ANAEMIA
     Dosage: UNK
     Route: 065
     Dates: start: 20150708, end: 20151110
  21. TALOFEN [Concomitant]
     Active Substance: PROMAZINE HYDROCHLORIDE
     Dosage: 1 DF, UNK
     Route: 048
  22. COPEGUS [Suspect]
     Active Substance: RIBAVIRIN
     Indication: HEPATITIS C
     Dosage: 1200 MILLIGRAM, ONCE A DAY, 200 MG -42 TABLETS IN A BOTTLE
     Route: 048
     Dates: start: 20150603, end: 20151111
  23. KIVEXA [Suspect]
     Active Substance: ABACAVIR SULFATE\LAMIVUDINE
     Indication: HIV INFECTION
     Dosage: 30X300+600 MG TABLETS IN PVC/PVDC/AL BLISTER PACK ()
     Route: 048
     Dates: start: 20120621
  24. RALTEGRAVIR. [Concomitant]
     Active Substance: RALTEGRAVIR
     Indication: HIV INFECTION
     Dosage: UNK
     Route: 065

REACTIONS (10)
  - Renal disorder [Recovered/Resolved]
  - Drug interaction [Recovered/Resolved]
  - Nephrolithiasis [Recovered/Resolved]
  - Biliary colic [Unknown]
  - Hyperbilirubinaemia [Recovered/Resolved]
  - Anaemia [Recovered/Resolved]
  - Cholelithiasis [Recovered/Resolved]
  - Jaundice [Unknown]
  - Renal tubular disorder [Unknown]
  - Haemoglobin decreased [Not Recovered/Not Resolved]

NARRATIVE: CASE EVENT DATE: 20150722
